FAERS Safety Report 5894959-3 (Version None)
Quarter: 2008Q3

REPORT INFORMATION
  Report Type: 
  Country: None (occurrence: None)
  Receive Date: 20080924
  Receipt Date: 20080922
  Transmission Date: 20090109
  Serious: Yes (Life-Threatening)
  Sender: FDA-Public Use
  Company Number: PHHY2008CO22113

PATIENT
  Age: 76 Year
  Sex: Female

DRUGS (3)
  1. TRILEPTAL [Suspect]
     Route: 048
  2. LITHIUM CARBONATE [Concomitant]
  3. RISPERIDONE [Concomitant]

REACTIONS (5)
  - GASTRIC LAVAGE [None]
  - HYPOTENSION [None]
  - INTENTIONAL OVERDOSE [None]
  - SOMNOLENCE [None]
  - SUICIDE ATTEMPT [None]
